FAERS Safety Report 17427340 (Version 1)
Quarter: 2020Q1

REPORT INFORMATION
  Report Type: Spontaneous
  Country: FR (occurrence: FR)
  Receive Date: 20200218
  Receipt Date: 20200218
  Transmission Date: 20200409
  Serious: Yes (Other)
  Sender: FDA-Public Use
  Company Number: FR-AMGEN-FRASP2020023885

PATIENT

DRUGS (4)
  1. DEXAMETHASONE. [Suspect]
     Active Substance: DEXAMETHASONE
     Indication: PLASMA CELL MYELOMA
     Dosage: 20 MILLIGRAM, ON DAYS 1, 2, 8, 9, 15, 16, 22 AND 23 OF EACH CYCLE
     Route: 065
  2. CARFILZOMIB [Suspect]
     Active Substance: CARFILZOMIB
     Dosage: 27 MILLIGRAM/SQ. METER
     Route: 042
  3. VENETOCLAX. [Suspect]
     Active Substance: VENETOCLAX
     Indication: PLASMA CELL MYELOMA
     Dosage: 400 MILLIGRAM, QD
     Route: 048
  4. CARFILZOMIB [Suspect]
     Active Substance: CARFILZOMIB
     Indication: PLASMA CELL MYELOMA
     Dosage: 20 MILLIGRAM/SQ. METER, AT DAYS 1, 2, 8, 9, 15 AND 16 OF EACH CYCLE EVERY FOUR WEEKS
     Route: 042

REACTIONS (4)
  - Infection [Unknown]
  - Cytopenia [Unknown]
  - Hypertension [Unknown]
  - Off label use [Unknown]
